FAERS Safety Report 24735243 (Version 1)
Quarter: 2024Q4

REPORT INFORMATION
  Report Type: Spontaneous
  Country: US (occurrence: US)
  Receive Date: 20241215
  Receipt Date: 20241215
  Transmission Date: 20250115
  Serious: No
  Sender: SANDOZ
  Company Number: US-SANDOZ-SDZ2024US100460

PATIENT
  Sex: Male

DRUGS (1)
  1. ALBUTEROL SULFATE [Suspect]
     Active Substance: ALBUTEROL SULFATE
     Indication: Asthma
     Dosage: UNK; 2 PUFFS EVERY TWO DAYS
     Route: 055

REACTIONS (4)
  - Incorrect dose administered by device [Unknown]
  - Device difficult to use [Unknown]
  - Device mechanical issue [Unknown]
  - Poor quality device used [Unknown]
